FAERS Safety Report 7809636-9 (Version None)
Quarter: 2011Q4

REPORT INFORMATION
  Report Type: 
  Country: None (occurrence: None)
  Receive Date: 20111007
  Receipt Date: 20110922
  Transmission Date: 20120403
  Serious: Yes (Hospitalization, Other)
  Sender: FDA-Public Use
  Company Number: THQ2011A00171

PATIENT
  Age: 70 Year
  Sex: Female

DRUGS (7)
  1. CALCIUM CARBONATE, VITAMINA D (CALCIUM CARBONATE, VITAMIN D NOS) [Concomitant]
  2. GLIMEPIRIDE [Concomitant]
  3. RASLY (ALL OTHER THERAPEUTIC PRODUCTS) [Concomitant]
  4. METFORMIN HYDROCHLORIDE [Concomitant]
  5. HOMEOPATHIC MEDICINE (HOMEPATHIC PREPARATION) [Concomitant]
  6. LOSARTAN POTASSIUM [Concomitant]
  7. ACTOS [Suspect]
     Indication: DIABETES MELLITUS
     Dosage: 30 MG (30 MG,1 IN 24 HR) PER ORAL
     Route: 048

REACTIONS (9)
  - MYOCARDIAL ISCHAEMIA [None]
  - DRUG INEFFECTIVE [None]
  - CORONARY ARTERY EMBOLISM [None]
  - ABDOMINAL PAIN UPPER [None]
  - PLEURAL EFFUSION [None]
  - ARRHYTHMIA [None]
  - HELICOBACTER GASTRITIS [None]
  - BLOOD GLUCOSE INCREASED [None]
  - FATIGUE [None]
